FAERS Safety Report 17203607 (Version 10)
Quarter: 2023Q1

REPORT INFORMATION
  Report Type: Report from Study
  Country: SG (occurrence: SG)
  Receive Date: 20191226
  Receipt Date: 20230302
  Transmission Date: 20230417
  Serious: Yes (Hospitalization)
  Sender: FDA-Public Use
  Company Number: NVSC2019SG075815

PATIENT
  Age: 58 Year
  Sex: Female
  Weight: 49.9 kg

DRUGS (20)
  1. CANAKINUMAB [Suspect]
     Active Substance: CANAKINUMAB
     Indication: Triple negative breast cancer
     Dosage: 600 MG
     Route: 058
     Dates: start: 20191202
  2. SPARTALIZUMAB [Suspect]
     Active Substance: SPARTALIZUMAB
     Indication: Triple negative breast cancer
     Dosage: 400 MG
     Route: 042
     Dates: start: 20191202
  3. IERAMILIMAB [Suspect]
     Active Substance: IERAMILIMAB
     Indication: Triple negative breast cancer
     Dosage: 600 MG
     Route: 042
     Dates: start: 20191202
  4. ATORVASTATIN [Concomitant]
     Active Substance: ATORVASTATIN
     Indication: Hyperlipidaemia
     Dosage: UNK
     Route: 065
     Dates: start: 2016
  5. RESONIUM [Concomitant]
     Active Substance: SODIUM POLYSTYRENE SULFONATE
     Indication: Hyperkalaemia
     Dosage: UNK
     Route: 065
     Dates: start: 20191209, end: 20191209
  6. METOCLOPRAMIDE HYDROCHLORIDE [Concomitant]
     Active Substance: METOCLOPRAMIDE HYDROCHLORIDE
     Indication: Prophylaxis of nausea and vomiting
     Dosage: UNK
     Route: 065
     Dates: start: 20191003, end: 20200311
  7. MAGNESIUM SULFATE [Concomitant]
     Active Substance: MAGNESIUM SULFATE
     Indication: Hypomagnesaemia
     Dosage: UNK (INFUSION)
     Route: 065
     Dates: start: 20191129, end: 20191129
  8. MAGNESIUM SULFATE [Concomitant]
     Active Substance: MAGNESIUM SULFATE
     Dosage: 49.3 %, INJECTION
     Route: 065
     Dates: start: 20191209, end: 20191209
  9. SODIUM CHLORIDE [Concomitant]
     Active Substance: SODIUM CHLORIDE
     Indication: Hyperkalaemia
     Dosage: UNK
     Route: 065
     Dates: start: 20191209, end: 20191210
  10. OMEPRAZOLE [Concomitant]
     Active Substance: OMEPRAZOLE
     Indication: Gastritis prophylaxis
     Dosage: UNK
     Route: 065
     Dates: start: 20191218, end: 20191218
  11. ACTRAPID [Concomitant]
     Active Substance: INSULIN HUMAN
     Indication: Diabetes mellitus
     Dosage: 5 UNITS
     Route: 065
     Dates: start: 20191209, end: 20191209
  12. DEXTROSE [Concomitant]
     Active Substance: DEXTROSE
     Indication: Prophylaxis
     Dosage: 40 ML, UNK
     Route: 065
     Dates: start: 20191209, end: 20191209
  13. ACETAMINOPHEN [Concomitant]
     Active Substance: ACETAMINOPHEN
     Indication: Pain prophylaxis
     Dosage: UNK
     Route: 065
     Dates: start: 20190906, end: 20200311
  14. ACETAMINOPHEN [Concomitant]
     Active Substance: ACETAMINOPHEN
     Indication: Hip fracture
  15. TRAMADOL [Concomitant]
     Active Substance: TRAMADOL
     Indication: Pain prophylaxis
     Dosage: UNK
     Route: 065
     Dates: start: 20191128, end: 20200311
  16. TRAMADOL [Concomitant]
     Active Substance: TRAMADOL
     Indication: Hip fracture
  17. ISOPHANE INSULIN [Concomitant]
     Active Substance: INSULIN NOS
     Indication: Diabetes mellitus
     Dosage: UNK
     Route: 065
     Dates: start: 2001
  18. CANDESARTAN CILEXETIL [Concomitant]
     Active Substance: CANDESARTAN CILEXETIL
     Indication: Hypertension
     Dosage: UNK
     Route: 065
     Dates: start: 20190906, end: 20200112
  19. METFORMIN HYDROCHLORIDE [Concomitant]
     Active Substance: METFORMIN HYDROCHLORIDE
     Indication: Diabetes mellitus
     Dosage: UNK
     Route: 065
     Dates: start: 2001, end: 20200318
  20. GLICLAZIDE [Concomitant]
     Active Substance: GLICLAZIDE
     Indication: Diabetes mellitus
     Dosage: UNK
     Route: 065
     Dates: start: 2001, end: 20200201

REACTIONS (1)
  - Decreased appetite [Recovered/Resolved]

NARRATIVE: CASE EVENT DATE: 20191218
